FAERS Safety Report 5755533-2 (Version None)
Quarter: 2008Q2

REPORT INFORMATION
  Report Type: 
  Country: None (occurrence: None)
  Receive Date: 20080530
  Receipt Date: 20080530
  Transmission Date: 20081010
  Serious: Yes (Other)
  Sender: FDA-Public Use
  Company Number: None

PATIENT
  Age: 48 Year
  Sex: Male
  Weight: 123.832 kg

DRUGS (1)
  1. SEROQUEL [Suspect]
     Indication: DEPRESSION
     Dosage: DAILY PO
     Route: 048
     Dates: start: 20080523, end: 20080523

REACTIONS (3)
  - CONDITION AGGRAVATED [None]
  - DYSPNOEA [None]
  - SLEEP APNOEA SYNDROME [None]
